FAERS Safety Report 21204622 (Version 1)
Quarter: 2022Q3

REPORT INFORMATION
  Report Type: Spontaneous
  Country: FR (occurrence: FR)
  Receive Date: 20220812
  Receipt Date: 20220812
  Transmission Date: 20221026
  Serious: Yes (Other)
  Sender: FDA-Public Use
  Company Number: None

PATIENT
  Sex: Female

DRUGS (1)
  1. ERLOTINIB [Suspect]
     Active Substance: ERLOTINIB
     Indication: Non-small cell lung cancer stage IV
     Dosage: UNK
     Dates: start: 201804, end: 202207

REACTIONS (2)
  - Malignant neoplasm progression [Unknown]
  - Non-small cell lung cancer stage IV [Unknown]
